FAERS Safety Report 4357672-X (Version None)
Quarter: 2004Q2

REPORT INFORMATION
  Report Type: 
  Country: None (occurrence: None)
  Receive Date: 20040510
  Receipt Date: 20040426
  Transmission Date: 20050107
  Serious: Yes (Life-Threatening, Hospitalization, Other)
  Sender: FDA-Public Use
  Company Number: JP-JNJFOC-20031200521

PATIENT
  Age: 60 Year
  Sex: Female
  Weight: 71 kg

DRUGS (12)
  1. REMICADE [Suspect]
     Indication: RHEUMATOID ARTHRITIS
     Dosage: SEE IMAGE INTRAVENOUS DRIP
     Route: 041
     Dates: start: 20031031, end: 20031031
  2. REMICADE [Suspect]
     Indication: RHEUMATOID ARTHRITIS
     Dosage: SEE IMAGE INTRAVENOUS DRIP
     Route: 041
     Dates: start: 20031113, end: 20031113
  3. RHEUMATREX [Concomitant]
  4. GANATON (ITOPRIDE HYDROCHLORIDE) TABLETS [Concomitant]
  5. ONE ALPHA (ALFACALCIDOL) TABLETS [Concomitant]
  6. RIMATIL (BUCILLAMINE) TABLETS [Concomitant]
  7. LASIX [Concomitant]
  8. RINDERON (BETAMETHASONE) TABLETS [Concomitant]
  9. LOXONIN (LOXOPROFEN SODIUM) TABLETS [Concomitant]
  10. CINAL (CINAL) POWDER [Concomitant]
  11. ACINON (NIZATIDINE) CAPSULES [Concomitant]
  12. GLORIAMIN (GLORIAMIN) GRANULES [Concomitant]

REACTIONS (20)
  - ALANINE AMINOTRANSFERASE INCREASED [None]
  - ATELECTASIS [None]
  - BACK PAIN [None]
  - BLISTER [None]
  - BLOOD ALBUMIN INCREASED [None]
  - BLOOD LACTATE DEHYDROGENASE INCREASED [None]
  - C-REACTIVE PROTEIN INCREASED [None]
  - ECZEMA [None]
  - HERPES ZOSTER [None]
  - LYMPHOCYTE PERCENTAGE INCREASED [None]
  - MONOCYTE PERCENTAGE DECREASED [None]
  - MONOCYTE PERCENTAGE INCREASED [None]
  - PAIN [None]
  - PLATELET COUNT DECREASED [None]
  - PNEUMOCYSTIS CARINII PNEUMONIA [None]
  - PNEUMONIA KLEBSIELLA [None]
  - RED BLOOD CELL COUNT DECREASED [None]
  - SERRATIA INFECTION [None]
  - SPUTUM CULTURE POSITIVE [None]
  - WHITE BLOOD CELL COUNT INCREASED [None]
